FAERS Safety Report 13000113 (Version 1)
Quarter: 2016Q4

REPORT INFORMATION
  Report Type: Other
  Country: CA (occurrence: CA)
  Receive Date: 20161205
  Receipt Date: 20161205
  Transmission Date: 20170207
  Serious: Yes (Life-Threatening, Disabling)
  Sender: FDA-Public Use
  Company Number: CA-APOTEX-2016AP015051

PATIENT
  Age: 34 Year
  Sex: Male
  Weight: 54.42 kg

DRUGS (1)
  1. APO-RISPERIDONE [Suspect]
     Active Substance: RISPERIDONE
     Indication: PRODUCT USED FOR UNKNOWN INDICATION
     Dosage: UNK
     Route: 048

REACTIONS (2)
  - Suicide attempt [Not Recovered/Not Resolved]
  - Dyskinesia [Not Recovered/Not Resolved]
